FAERS Safety Report 9464311 (Version 1)
Quarter: 2013Q3

REPORT INFORMATION
  Report Type: Spontaneous
  Country: US (occurrence: US)
  Receive Date: 20130819
  Receipt Date: 20130819
  Transmission Date: 20140515
  Serious: Yes (Other)
  Sender: FDA-Public Use
  Company Number: US-PFIZER INC-2013232766

PATIENT
  Age: 52 Year
  Sex: Male
  Weight: 104 kg

DRUGS (13)
  1. PROPOFOL [Suspect]
     Indication: ANAESTHESIA
     Dosage: 200 MG, UNK
  2. EPINEPHRINE [Suspect]
     Indication: ANAPHYLACTIC REACTION
     Dosage: BOLUS DOSE OF 300 UG
  3. EPINEPHRINE [Suspect]
     Dosage: 1 MG BOLUSES (3.5 MG TOTAL)
     Route: 042
  4. PHENYLEPHRINE [Suspect]
     Indication: ANAPHYLACTIC REACTION
     Dosage: 500 UG TOTAL
  5. FENTANYL [Concomitant]
     Indication: ANAESTHESIA
     Dosage: 200 UG, UNK
     Route: 042
  6. ROCURONIUM [Concomitant]
     Indication: HYPOTONIA
     Dosage: 50 MG, UNK
  7. DESFLURANE [Concomitant]
     Indication: MAINTENANCE OF ANAESTHESIA
     Dosage: 4.5% TO 6.0%
  8. CEFAZOLIN [Concomitant]
     Indication: ANTIBIOTIC PROPHYLAXIS
     Dosage: 2 G, UNK
     Route: 042
  9. EPHEDRINE [Concomitant]
     Indication: ANAPHYLACTIC REACTION
     Dosage: 20 MG TOTAL
     Route: 042
  10. HYDROCORTISONE [Concomitant]
     Indication: ANAPHYLACTIC SHOCK
     Dosage: 300 MG, UNK
     Route: 042
  11. DIPHENHYDRAMINE [Concomitant]
     Indication: ANAPHYLACTIC SHOCK
     Dosage: 50 MG, UNK
     Route: 042
  12. FAMOTIDINE [Concomitant]
     Indication: ANAPHYLACTIC SHOCK
     Dosage: 20 MG, UNK
     Route: 042
  13. VASOPRESSIN [Concomitant]
     Indication: CIRCULATORY COLLAPSE
     Dosage: 20 UNITS
     Route: 042

REACTIONS (2)
  - Propofol infusion syndrome [Recovering/Resolving]
  - Metabolic acidosis [Recovering/Resolving]
